FAERS Safety Report 6013623-3 (Version None)
Quarter: 2008Q4

REPORT INFORMATION
  Report Type: 
  Country: None (occurrence: None)
  Receive Date: 20081219
  Receipt Date: 20081216
  Transmission Date: 20090506
  Serious: Yes (Hospitalization, Other)
  Sender: FDA-Public Use
  Company Number: FR-BRISTOL-MYERS SQUIBB COMPANY-14445779

PATIENT
  Age: 72 Year
  Sex: Female

DRUGS (14)
  1. COAPROVEL [Suspect]
     Dosage: 1DF=300MG/12.5MG
  2. TRANXENE [Suspect]
  3. ATARAX [Suspect]
  4. NORSET [Suspect]
     Dates: end: 20081119
  5. MEPRONIZINE [Suspect]
     Dates: end: 20081119
  6. CORTANCYL [Concomitant]
  7. LEVOTHYROX [Concomitant]
  8. UN-ALFA [Concomitant]
  9. NOVONORM [Concomitant]
  10. CACIT [Concomitant]
  11. ACETAMINOPHEN [Concomitant]
  12. DIFFU-K [Concomitant]
  13. DUPHALAC [Concomitant]
  14. TARDYFERON [Concomitant]

REACTIONS (7)
  - BRADYPHRENIA [None]
  - DEHYDRATION [None]
  - FACIAL PALSY [None]
  - FALL [None]
  - MALAISE [None]
  - ORTHOSTATIC HYPOTENSION [None]
  - RENAL FAILURE ACUTE [None]
